FAERS Safety Report 6882415-5 (Version None)
Quarter: 2010Q3

REPORT INFORMATION
  Report Type: 
  Country: None (occurrence: None)
  Receive Date: 20100728
  Receipt Date: 20100728
  Transmission Date: 20110219
  Serious: Yes (Hospitalization)
  Sender: FDA-Public Use
  Company Number: None

PATIENT
  Age: 54 Year
  Sex: Male

DRUGS (1)
  1. BENAZEPRIL [Suspect]
     Indication: HYPERTENSION
     Dates: start: 20100601, end: 20100612

REACTIONS (7)
  - ANGIOEDEMA [None]
  - BLOOD BICARBONATE INCREASED [None]
  - DEHYDRATION [None]
  - HAEMOGLOBIN INCREASED [None]
  - HYPERTENSIVE CRISIS [None]
  - LEFT VENTRICULAR HYPERTROPHY [None]
  - NO THERAPEUTIC RESPONSE [None]
